FAERS Safety Report 9264899 (Version 1)
Quarter: 2013Q2

REPORT INFORMATION
  Report Type: Spontaneous
  Country: AU (occurrence: AU)
  Receive Date: 20130501
  Receipt Date: 20130501
  Transmission Date: 20140414
  Serious: Yes (Other)
  Sender: FDA-Public Use
  Company Number: PHHY2013AU041300

PATIENT
  Sex: Female

DRUGS (6)
  1. ACLASTA [Suspect]
     Dosage: UNK
     Route: 042
  2. ASMOL [Concomitant]
     Dosage: UNK
  3. AVAMYS [Concomitant]
     Dosage: UNK
  4. CALTRATE [Concomitant]
     Dosage: UNK
  5. COUMADIN ^BOOTS^ [Concomitant]
     Dosage: UNK
  6. ATORVASTATIN [Concomitant]
     Dosage: UNK

REACTIONS (1)
  - Osteonecrosis of jaw [Unknown]
